FAERS Safety Report 5694162-6 (Version None)
Quarter: 2008Q2

REPORT INFORMATION
  Report Type: 
  Country: None (occurrence: None)
  Receive Date: 20080402
  Receipt Date: 20080328
  Transmission Date: 20081010
  Serious: Yes (Life-Threatening, Hospitalization, Other)
  Sender: FDA-Public Use
  Company Number: CLOF-10811

PATIENT
  Age: 67 Year
  Sex: Male

DRUGS (39)
  1. CLOFARABINE (CLOFARABINE) SOLUTION FOR INFUSION [Suspect]
     Indication: ACUTE MYELOID LEUKAEMIA
     Dosage: 39 MG, QDX5, INTRAVENOUS
     Route: 042
     Dates: start: 20071122, end: 20071126
  2. IDARUBICIN HCL [Suspect]
     Indication: ACUTE MYELOID LEUKAEMIA
     Dosage: 10.5 MG, QDX3, INTRAVENOUS
     Route: 042
     Dates: start: 20071121, end: 20071123
  3. CYTARABINE [Suspect]
     Indication: ACUTE MYELOID LEUKAEMIA
     Dosage: 1.36 G, QDX5, INTRAVENOUS
     Route: 042
     Dates: start: 20071121, end: 20071125
  4. PANTOPRAZOLE SODIUM [Concomitant]
  5. AZTREONAM (AZTREONAM) [Concomitant]
  6. CLINDAMYCIN HCL [Concomitant]
  7. ZYVOX [Concomitant]
  8. DILAUDID [Concomitant]
  9. SENOKOT (SENNA ALEXANDRINA) [Concomitant]
  10. CASPOFUNGIN (CASPOFUNGIN) [Concomitant]
  11. CIPRO [Concomitant]
  12. DETROL [Concomitant]
  13. MAGNESIUM OXIDE (MAGNESIUM OXIDE) [Concomitant]
  14. METHADONE HCL [Concomitant]
  15. REGLAN [Concomitant]
  16. MINOCYCLINE HCL [Concomitant]
  17. VALTREX [Concomitant]
  18. COMPAZINE (PROCHLORPERAZINE MALEATE) [Concomitant]
  19. DARVON (DEXTROPROPOXYPHENE NAPSILATE) [Concomitant]
  20. DILTIAZEM (DILTIAZEM HYDROCHLORIDE) [Concomitant]
  21. MEGACE [Concomitant]
  22. POTASSIUM CHLORIDE [Concomitant]
  23. PROTONIX [Concomitant]
  24. PREDNISOLONE ACETATE [Concomitant]
  25. CLONIDINE [Concomitant]
  26. DAPTOMYCIN (DAPTOMYCIN) [Concomitant]
  27. QUETIAPINE FUMARATE [Concomitant]
  28. VFEND [Concomitant]
  29. ACYCLOVIR [Concomitant]
  30. AMPHOTERICIN B [Concomitant]
  31. VORICONAZOLE (VORICONAZOLE) [Concomitant]
  32. CIPRO [Concomitant]
  33. LEVALBUTEROL HYDROCHLORIDE (LEVOSALBUTAMOL HYDROCHLORIDE) [Concomitant]
  34. LASIX [Concomitant]
  35. DIPHENHYDRAMINE (DIPHENHYDRAMINE, SODIUM CITRATE) [Concomitant]
  36. ANTIHEMOPHILIC FACTOR (FACTOR VIII (ANTIHAEMOPHILIC FACTOR)) [Concomitant]
  37. MEROPENEM (MEROPENEM) [Concomitant]
  38. AMIKACIN SULFATE [Concomitant]
  39. METHYLPREDNISOLONE [Concomitant]

REACTIONS (10)
  - ACTIVATED PARTIAL THROMBOPLASTIN TIME PROLONGED [None]
  - ACUTE RESPIRATORY FAILURE [None]
  - BACK PAIN [None]
  - BONE MARROW FAILURE [None]
  - CONFUSIONAL STATE [None]
  - DYSPNOEA [None]
  - HYPOTENSION [None]
  - HYPOXIA [None]
  - LABORATORY TEST ABNORMAL [None]
  - PNEUMONIA [None]
